FAERS Safety Report 10615186 (Version 3)
Quarter: 2015Q1

REPORT INFORMATION
  Report Type: Spontaneous
  Country: US (occurrence: US)
  Receive Date: 20141201
  Receipt Date: 20150116
  Transmission Date: 20150720
  Serious: No
  Sender: FDA-Public Use
  Company Number: US-PFIZER INC-2014321572

PATIENT
  Sex: Female

DRUGS (2)
  1. ZARONTIN [Suspect]
     Active Substance: ETHOSUXIMIDE
     Indication: SEIZURE
     Dosage: 750 MG, 2X/DAY (3 CAPSULES 750MG TOTAL)
     Dates: start: 2009
  2. ZARONTIN [Suspect]
     Active Substance: ETHOSUXIMIDE
     Indication: PETIT MAL EPILEPSY

REACTIONS (2)
  - Fatigue [Unknown]
  - Attention deficit/hyperactivity disorder [Not Recovered/Not Resolved]
